FAERS Safety Report 26112031 (Version 1)
Quarter: 2025Q4

REPORT INFORMATION
  Report Type: Report from Study
  Country: SA (occurrence: SA)
  Receive Date: 20251202
  Receipt Date: 20251202
  Transmission Date: 20260117
  Serious: Yes (Other)
  Sender: CHEPLAPHARM
  Company Number: SA-CHEPLA-2025013532

PATIENT
  Age: 47 Year
  Sex: Male

DRUGS (7)
  1. VALGANCICLOVIR [Suspect]
     Active Substance: VALGANCICLOVIR
     Indication: Prophylaxis
  2. GANCICLOVIR [Suspect]
     Active Substance: GANCICLOVIR
     Indication: Cytomegalovirus infection
  3. GANCICLOVIR [Suspect]
     Active Substance: GANCICLOVIR
     Indication: Cytomegalovirus infection
     Dosage: REINTRODUCED
  4. MYCOPHENOLATE MOFETIL [Concomitant]
     Active Substance: MYCOPHENOLATE MOFETIL
  5. SIROLIMUS [Concomitant]
     Active Substance: SIROLIMUS
  6. MEROPENEM [Concomitant]
     Active Substance: MEROPENEM
  7. FOSCARNET [Concomitant]
     Active Substance: FOSCARNET

REACTIONS (4)
  - Cardiac failure [Unknown]
  - Left ventricular dysfunction [Unknown]
  - Right ventricular dysfunction [Unknown]
  - Drug ineffective [Unknown]
